FAERS Safety Report 17342591 (Version 1)
Quarter: 2020Q1

REPORT INFORMATION
  Report Type: Spontaneous
  Country: US (occurrence: US)
  Receive Date: 20200129
  Receipt Date: 20200129
  Transmission Date: 20200409
  Serious: No
  Sender: FDA-Public Use
  Company Number: US-ALLERGAN-1912221US

PATIENT
  Sex: Female

DRUGS (3)
  1. BOTOX [Suspect]
     Active Substance: ONABOTULINUMTOXINA
     Indication: MIGRAINE
     Dosage: UNK UNK, SINGLE
     Dates: start: 201812, end: 201812
  2. UNKNONWN OTHER MIGRAINE MEDICATIONS [Concomitant]
     Indication: MIGRAINE
     Dosage: UNK
     Route: 048
  3. UNKNONWN OTHER MIGRAINE MEDICATIONS [Concomitant]
     Indication: HEADACHE

REACTIONS (4)
  - Nasopharyngitis [Not Recovered/Not Resolved]
  - Malaise [Not Recovered/Not Resolved]
  - Nasal congestion [Not Recovered/Not Resolved]
  - Cough [Not Recovered/Not Resolved]
